FAERS Safety Report 7012610-6 (Version None)
Quarter: 2010Q3

REPORT INFORMATION
  Report Type: 
  Country: None (occurrence: None)
  Receive Date: 20100924
  Receipt Date: 20100915
  Transmission Date: 20110219
  Serious: Yes (Hospitalization, Other)
  Sender: FDA-Public Use
  Company Number: US-NAPPMUNDI-GBR-2010-0007076

PATIENT
  Age: 68 Year
  Sex: Male

DRUGS (5)
  1. NON-PMN MORPHINE SULFATE [Suspect]
     Indication: BACK PAIN
     Dosage: 8 MG, DAILY
     Route: 037
  2. HYDROMORPHONE HCL [Suspect]
     Indication: BACK PAIN
     Dosage: UNK
     Route: 042
  3. BUPIVACAINE HCL [Suspect]
     Indication: BREAKTHROUGH PAIN
     Dosage: 2 MG, DAILY
     Route: 065
  4. METHADONE [Concomitant]
     Indication: BACK PAIN
     Dosage: 10 MG, DAILY
     Route: 048
  5. GABAPENTIN [Concomitant]
     Route: 065

REACTIONS (4)
  - CONSTIPATION [None]
  - DELIRIUM [None]
  - PAIN [None]
  - SEDATION [None]
